FAERS Safety Report 5053903-1 (Version None)
Quarter: 2006Q3

REPORT INFORMATION
  Report Type: 
  Country: None (occurrence: None)
  Receive Date: 20060712
  Receipt Date: 20060622
  Transmission Date: 20061208
  Serious: Yes (Hospitalization)
  Sender: FDA-Public Use
  Company Number: FR200605006000

PATIENT
  Age: 39 Year
  Sex: Female
  Weight: 65 kg

DRUGS (2)
  1. PROZAC [Suspect]
     Indication: DEPRESSION
     Dosage: 20 MG, DAILY (1/D/), ORAL
     Route: 048
     Dates: start: 20051015, end: 20060101
  2. DAFLON (DIOSMIN) [Concomitant]

REACTIONS (1)
  - ANGIONEUROTIC OEDEMA [None]
